FAERS Safety Report 23298953 (Version 1)
Quarter: 2023Q4

REPORT INFORMATION
  Report Type: Spontaneous
  Country: US (occurrence: US)
  Receive Date: 20231215
  Receipt Date: 20231215
  Transmission Date: 20240110
  Serious: No
  Sender: FDA-Public Use
  Company Number: US-SA-SAC20231211000227

PATIENT
  Age: 66 Year
  Sex: Male

DRUGS (2)
  1. DUPIXENT [Suspect]
     Active Substance: DUPILUMAB
     Indication: Eczema
     Dosage: 600MG DAY 1
     Route: 058
     Dates: start: 20230804, end: 20230804
  2. DUPIXENT [Suspect]
     Active Substance: DUPILUMAB
     Dosage: (300 MG) ON DAY 15 (DATE UNKNOWN), THEN EVERY 14 DAYS THEREAFTER
     Route: 058
     Dates: start: 202308

REACTIONS (2)
  - Eczema [Unknown]
  - Pain of skin [Unknown]

NARRATIVE: CASE EVENT DATE: 20230101
